FAERS Safety Report 6284470-2 (Version None)
Quarter: 2009Q3

REPORT INFORMATION
  Report Type: 
  Country: None (occurrence: None)
  Receive Date: 20090727
  Receipt Date: 20090717
  Transmission Date: 20100115
  Serious: Yes (Hospitalization)
  Sender: FDA-Public Use
  Company Number: IT-AMGEN-QUU354295

PATIENT
  Sex: Female
  Weight: 31 kg

DRUGS (3)
  1. GRANULOKINE [Suspect]
     Indication: NEUTROPENIA
     Route: 058
     Dates: start: 20090422
  2. ZYLORIC [Concomitant]
     Route: 048
     Dates: start: 20040101
  3. MYCOSTATIN [Concomitant]
     Route: 048
     Dates: start: 20060101

REACTIONS (6)
  - ALANINE AMINOTRANSFERASE INCREASED [None]
  - ANAEMIA [None]
  - ASPARTATE AMINOTRANSFERASE INCREASED [None]
  - BLOOD LACTATE DEHYDROGENASE INCREASED [None]
  - THROMBOCYTOPENIA [None]
  - WHITE BLOOD CELL COUNT DECREASED [None]
